FAERS Safety Report 6933510-3 (Version None)
Quarter: 2010Q3

REPORT INFORMATION
  Report Type: 
  Country: None (occurrence: None)
  Receive Date: 20100820
  Receipt Date: 20100810
  Transmission Date: 20110219
  Serious: Yes (Disabling, Other)
  Sender: FDA-Public Use
  Company Number: GB-PFIZER INC-2010095727

PATIENT
  Age: 54 Year
  Sex: Female

DRUGS (4)
  1. CHAMPIX [Suspect]
     Indication: EX-TOBACCO USER
     Dosage: 1 MG, 2X/DAY
     Route: 048
     Dates: start: 20100610, end: 20100708
  2. ACETYLSALICYLIC ACID [Concomitant]
     Indication: PROPHYLAXIS
     Dosage: 75 MG, UNK
     Route: 048
  3. CALCICHEW-D3 [Concomitant]
     Indication: OSTEOPOROSIS PROPHYLAXIS
     Dosage: 2 DF, UNK
     Route: 048
  4. PREMARIN [Concomitant]
     Indication: MENOPAUSE
     Dosage: 30 MG, UNK
     Route: 048

REACTIONS (9)
  - BONE PAIN [None]
  - CHILLS [None]
  - DECREASED APPETITE [None]
  - FATIGUE [None]
  - HEADACHE [None]
  - NAUSEA [None]
  - PYREXIA [None]
  - SYNCOPE [None]
  - VOMITING [None]
